FAERS Safety Report 26181568 (Version 1)
Quarter: 2025Q4

REPORT INFORMATION
  Report Type: Spontaneous
  Country: AR (occurrence: AR)
  Receive Date: 20251221
  Receipt Date: 20251221
  Transmission Date: 20260118
  Serious: Yes (Hospitalization)
  Sender: BIOGEN
  Company Number: AR-BIOGEN-2087997

PATIENT
  Age: 14 Year
  Sex: Female

DRUGS (1)
  1. SPINRAZA [Suspect]
     Active Substance: NUSINERSEN
     Indication: Spinal muscular atrophy
     Dosage: LAST DOSE: 04OCT2025. THERE IS A DELAY IN THE APPLICATION OF THE LAST DOSE.
     Dates: start: 20240529, end: 20251004

REACTIONS (4)
  - Caesarean section [Recovered/Resolved]
  - Fatigue [Not Recovered/Not Resolved]
  - Irritability [Unknown]
  - Maternal exposure during pregnancy [Recovered/Resolved]

NARRATIVE: CASE EVENT DATE: 20250301
